FAERS Safety Report 25086944 (Version 1)
Quarter: 2025Q1

REPORT INFORMATION
  Report Type: Spontaneous
  Country: DE (occurrence: DE)
  Receive Date: 20250318
  Receipt Date: 20250318
  Transmission Date: 20250409
  Serious: Yes (Other)
  Sender: PANACEA BIOTEC PHARMA LIMITED
  Company Number: None

PATIENT
  Age: 50 Year
  Sex: Male

DRUGS (1)
  1. TACROLIMUS [Suspect]
     Active Substance: TACROLIMUS
     Indication: Renal transplant
     Dosage: 4MG 1-0-0
     Route: 048
     Dates: start: 2009, end: 20250218

REACTIONS (6)
  - Demyelination [Recovered/Resolved with Sequelae]
  - Respiratory failure [Unknown]
  - Coma [Unknown]
  - Areflexia [Unknown]
  - Metabolic acidosis [Unknown]
  - Tachyarrhythmia [Unknown]

NARRATIVE: CASE EVENT DATE: 20250126
